FAERS Safety Report 10936286 (Version 1)
Quarter: 2015Q1

REPORT INFORMATION
  Report Type: Spontaneous
  Country: US (occurrence: None)
  Receive Date: 20150320
  Receipt Date: 20150320
  Transmission Date: 20150721
  Serious: Yes (Other)
  Sender: FDA-Public Use
  Company Number: None

PATIENT
  Age: 48 Year
  Sex: Female
  Weight: 75.75 kg

DRUGS (1)
  1. CONTRAVE [Suspect]
     Active Substance: BUPROPION HYDROCHLORIDE\NALTREXONE HYDROCHLORIDE
     Dosage: TAKEN BY MOUTH
     Route: 048

REACTIONS (7)
  - Vomiting [None]
  - Hypersomnia [None]
  - Headache [None]
  - Nausea [None]
  - Dizziness [None]
  - Eye pain [None]
  - Photosensitivity reaction [None]

NARRATIVE: CASE EVENT DATE: 20150318
